FAERS Safety Report 8698014 (Version 2)
Quarter: 2013Q4

REPORT INFORMATION
  Report Type: Spontaneous
  Country: US (occurrence: US)
  Receive Date: 20120801
  Receipt Date: 20131107
  Transmission Date: 20140711
  Serious: Yes (Disabling, Other)
  Sender: FDA-Public Use
  Company Number: US-009507513-1207USA009861

PATIENT
  Age: 85 Year
  Sex: Male

DRUGS (10)
  1. ZOCOR [Suspect]
     Dosage: 40 MG, UNK
  2. VERAPAMIL HYDROCHLORIDE [Suspect]
     Dosage: 40 MG, TID
     Route: 048
  3. BECLOMETHASONE DIPROPIONATE [Concomitant]
  4. PANADEINE (ACETAMINOPHEN (+) CODEINE PHOSPHATE) [Concomitant]
     Dosage: 2 MG, UNK
  5. BRIMONIDINE TARTRATE [Concomitant]
  6. SALBUTAMOL SANDOZ (ALBUTEROL) [Concomitant]
  7. SALMETEROL [Concomitant]
     Dosage: 2 MG, UNK
  8. ASPIRIN [Concomitant]
  9. FUROSEMIDE [Concomitant]
     Dosage: 40 MG, UNK
  10. LISINOPRIL [Concomitant]
     Dosage: 20 MG, UNK

REACTIONS (3)
  - Myositis [Unknown]
  - Hypokinesia [Unknown]
  - Blood creatine phosphokinase increased [Unknown]
